FAERS Safety Report 5298811-6 (Version None)
Quarter: 2007Q2

REPORT INFORMATION
  Report Type: 
  Country: None (occurrence: None)
  Receive Date: 20070411
  Receipt Date: 20070411
  Transmission Date: 20071010
  Serious: Yes (Hospitalization)
  Sender: FDA-Public Use
  Company Number: None

PATIENT
  Age: 74 Year
  Sex: Male
  Weight: 96.3 kg

DRUGS (2)
  1. LINEZOLID [Suspect]
     Indication: OSTEOMYELITIS
     Dosage: 1200MG, 600MG BID, INTRAVEN
     Route: 042
     Dates: start: 20070216, end: 20070228
  2. LINEZOLID [Suspect]
     Indication: PATHOGEN RESISTANCE
     Dosage: 1200MG, 600MG BID, INTRAVEN
     Route: 042
     Dates: start: 20070216, end: 20070228

REACTIONS (3)
  - HEPATIC ENZYME ABNORMAL [None]
  - NEUTROPENIA [None]
  - THROMBOCYTOPENIA [None]
